FAERS Safety Report 22633685 (Version 7)
Quarter: 2024Q4

REPORT INFORMATION
  Report Type: Report from Study
  Country: NL (occurrence: NL)
  Receive Date: 20230623
  Receipt Date: 20241002
  Transmission Date: 20250114
  Serious: Yes (Other)
  Sender: ABBVIE
  Company Number: NL-ABBVIE-4240539

PATIENT
  Sex: Female

DRUGS (15)
  1. CARBIDOPA\LEVODOPA [Suspect]
     Active Substance: CARBIDOPA\LEVODOPA
     Indication: Parkinson^s disease
     Dosage: MD: 11.0ML; CD: 2.7ML/H; ED; 3.0ML
     Route: 050
     Dates: start: 20231204, end: 20240325
  2. CARBIDOPA\LEVODOPA [Suspect]
     Active Substance: CARBIDOPA\LEVODOPA
     Dosage: MD 11.0ML,  CD 2.5ML/H,  ED 1.0ML
     Route: 050
  3. CARBIDOPA\LEVODOPA [Suspect]
     Active Substance: CARBIDOPA\LEVODOPA
     Dosage: MD: 11.0ML; CD: 2.7ML/H; ED; 3.0ML, REMAINS AT 16 HOURS
     Route: 050
     Dates: start: 20240923
  4. CARBIDOPA\LEVODOPA [Suspect]
     Active Substance: CARBIDOPA\LEVODOPA
     Dosage: MD 11.0ML, CD 2.1ML/H, ED 1.0ML?DURATION TEXT: REMAINS AT 16 HOURS
     Route: 050
     Dates: start: 20220620, end: 20220620
  5. CARBIDOPA\LEVODOPA [Suspect]
     Active Substance: CARBIDOPA\LEVODOPA
     Route: 050
  6. CARBIDOPA\LEVODOPA [Suspect]
     Active Substance: CARBIDOPA\LEVODOPA
     Route: 050
  7. CARBIDOPA\LEVODOPA [Suspect]
     Active Substance: CARBIDOPA\LEVODOPA
     Dosage: MD 11.0ML,  CD 2.1ML/H, ED 1.0ML
     Route: 050
  8. CARBIDOPA\LEVODOPA [Suspect]
     Active Substance: CARBIDOPA\LEVODOPA
     Dosage: MD 11.0ML,  CD 2.5ML/H,  ED 1.0ML?DURATION TEXT: REMAINS AT 16 HOURS
     Route: 050
     Dates: start: 20220727, end: 20220727
  9. CARBIDOPA\LEVODOPA [Suspect]
     Active Substance: CARBIDOPA\LEVODOPA
     Dosage: MD 11.0ML, CD 2.7ML/H, ED 3.0ML?DURATION TEXT: REMAINS AT 16 HOURS
     Route: 050
     Dates: start: 20230619, end: 20231031
  10. CARBIDOPA\LEVODOPA [Suspect]
     Active Substance: CARBIDOPA\LEVODOPA
     Dosage: MD 11.0ML, CD 2.7ML/H, ED 3.0ML?DURATION TEXT: REMAINS AT 16 HOURS
     Route: 050
     Dates: start: 20231031, end: 20231204
  11. CARBIDOPA\LEVODOPA [Suspect]
     Active Substance: CARBIDOPA\LEVODOPA
     Dosage: MD: 11.0ML; CD: 2.7ML/H; ED; 3.0ML?REMAINS AT 16 HOURS
     Route: 050
     Dates: start: 20240325, end: 20240701
  12. CARBIDOPA\LEVODOPA [Suspect]
     Active Substance: CARBIDOPA\LEVODOPA
     Dosage: MD: 11.0ML; CD: 2.7ML/H; ED; 3.0ML
     Route: 050
     Dates: start: 20240701, end: 20240923
  13. CARBIDOPA\LEVODOPA [Concomitant]
     Active Substance: CARBIDOPA\LEVODOPA
     Indication: Parkinson^s disease
     Dosage: TIME INTERVAL: 0.125 DAYS
     Route: 048
     Dates: start: 20190408, end: 20220613
  14. MOVICOLON [Concomitant]
     Active Substance: POLYETHYLENE GLYCOL 3350\POTASSIUM CHLORIDE\SODIUM BICARBONATE\SODIUM CHLORIDE
     Indication: Bowel movement irregularity
     Route: 065
  15. POLYETHYLENE GLYCOLS [Concomitant]
     Active Substance: POLYETHYLENE GLYCOLS
     Indication: Gastrointestinal motility disorder

REACTIONS (35)
  - Bladder catheterisation [Recovered/Resolved]
  - Anal haemorrhage [Recovered/Resolved]
  - Catheter site inflammation [Not Recovered/Not Resolved]
  - Muscle spasms [Not Recovered/Not Resolved]
  - Memory impairment [Not Recovered/Not Resolved]
  - Bladder pain [Not Recovered/Not Resolved]
  - Nocturia [Not Recovered/Not Resolved]
  - Abnormal dreams [Not Recovered/Not Resolved]
  - Terminal insomnia [Not Recovered/Not Resolved]
  - Anal incontinence [Not Recovered/Not Resolved]
  - Initial insomnia [Not Recovered/Not Resolved]
  - Device occlusion [Not Recovered/Not Resolved]
  - Wound [Not Recovered/Not Resolved]
  - Diarrhoea [Not Recovered/Not Resolved]
  - Muscle rigidity [Not Recovered/Not Resolved]
  - On and off phenomenon [Not Recovered/Not Resolved]
  - Urinary incontinence [Not Recovered/Not Resolved]
  - Freezing phenomenon [Not Recovered/Not Resolved]
  - Personality change [Not Recovered/Not Resolved]
  - Dyskinesia [Not Recovered/Not Resolved]
  - Bursitis [Not Recovered/Not Resolved]
  - Pain [Recovering/Resolving]
  - Fibroma [Not Recovered/Not Resolved]
  - Loss of personal independence in daily activities [Not Recovered/Not Resolved]
  - Bladder disorder [Not Recovered/Not Resolved]
  - Fatigue [Not Recovered/Not Resolved]
  - Bladder spasm [Not Recovered/Not Resolved]
  - Unevaluable event [Not Recovered/Not Resolved]
  - Weight decreased [Not Recovered/Not Resolved]
  - Hallucination [Not Recovered/Not Resolved]
  - Restlessness [Not Recovered/Not Resolved]
  - Stoma site reaction [Recovering/Resolving]
  - Stoma site reaction [Not Recovered/Not Resolved]
  - Urinary tract disorder [Not Recovered/Not Resolved]
  - Device occlusion [Unknown]

NARRATIVE: CASE EVENT DATE: 20220101
